FAERS Safety Report 4932874-X (Version None)
Quarter: 2006Q1

REPORT INFORMATION
  Report Type: 
  Country: None (occurrence: None)
  Receive Date: 20060302
  Receipt Date: 20060302
  Transmission Date: 20060701
  Serious: Yes (Hospitalization)
  Sender: FDA-Public Use
  Company Number: None

PATIENT
  Age: 85 Year
  Sex: Female

DRUGS (1)
  1. WARFARIN     2.5 [Suspect]
     Indication: ATRIAL FIBRILLATION
     Dosage: 2.5 MG  DAILY  PO
     Route: 048

REACTIONS (5)
  - ASTHENIA [None]
  - EPISTAXIS [None]
  - HAEMOGLOBIN INCREASED [None]
  - INTERNATIONAL NORMALISED RATIO INCREASED [None]
  - ORTHOSTATIC HYPOTENSION [None]
